FAERS Safety Report 6210262-6 (Version None)
Quarter: 2009Q2

REPORT INFORMATION
  Report Type: 
  Country: None (occurrence: None)
  Receive Date: 20090527
  Receipt Date: 20090513
  Transmission Date: 20091009
  Serious: Yes (Hospitalization)
  Sender: FDA-Public Use
  Company Number: 8045277

PATIENT
  Age: 52 Year
  Sex: Female
  Weight: 94.3 kg

DRUGS (7)
  1. CDP870 [Suspect]
     Indication: RHEUMATOID ARTHRITIS
     Dosage: 400 MG 1/2W SC
     Route: 058
     Dates: start: 20051226, end: 20060612
  2. CDP870 [Suspect]
     Indication: RHEUMATOID ARTHRITIS
     Dosage: 400 MG 1/2W SC
     Route: 058
     Dates: start: 20060612, end: 20071030
  3. CDP870 [Suspect]
     Indication: RHEUMATOID ARTHRITIS
     Dosage: 200 MG 1/2W SC
     Route: 058
     Dates: start: 20071113, end: 20090408
  4. METHOTREXATE [Concomitant]
  5. FOLIC ACID [Concomitant]
  6. METFORMIN HYDROCHLORIDE [Concomitant]
  7. GLIBENCLAMIDE [Concomitant]

REACTIONS (8)
  - ABDOMINAL PAIN UPPER [None]
  - BLOOD GLUCOSE INCREASED [None]
  - CELLULITIS [None]
  - DIABETIC COMPLICATION [None]
  - DIABETIC FOOT INFECTION [None]
  - GLYCOSYLATED HAEMOGLOBIN INCREASED [None]
  - SEPSIS [None]
  - VERTIGO [None]
